FAERS Safety Report 8235199-2 (Version None)
Quarter: 2012Q1

REPORT INFORMATION
  Report Type: 
  Country: None (occurrence: None)
  Receive Date: 20120326
  Receipt Date: 20120314
  Transmission Date: 20120608
  Serious: Yes (Hospitalization)
  Sender: FDA-Public Use
  Company Number: JP-PFIZER INC-2012074532

PATIENT
  Age: 62 Year
  Sex: Male

DRUGS (2)
  1. CELECOXIB [Suspect]
     Indication: MUSCULOSKELETAL PAIN
     Dosage: 200 MG, UNK
     Route: 048
  2. RHEUMATREX [Concomitant]
     Route: 048

REACTIONS (1)
  - ASTHMA [None]
